FAERS Safety Report 18649298 (Version 1)
Quarter: 2020Q4

REPORT INFORMATION
  Report Type: Spontaneous
  Country: US (occurrence: US)
  Receive Date: 20201221
  Receipt Date: 20201221
  Transmission Date: 20210114
  Serious: Yes (Hospitalization)
  Sender: FDA-Public Use
  Company Number: None

PATIENT
  Age: 73 Year
  Sex: Male
  Weight: 95.71 kg

DRUGS (1)
  1. LOPERAMIDE (LOPERAMIDE HCL 2MG CAP, UD) [Suspect]
     Active Substance: LOPERAMIDE HYDROCHLORIDE
     Indication: GASTROINTESTINAL MOTILITY DISORDER
     Route: 048
     Dates: start: 20200721, end: 20200722

REACTIONS (5)
  - Abdominal pain [None]
  - Nausea [None]
  - Ileus [None]
  - Eructation [None]
  - Vomiting [None]

NARRATIVE: CASE EVENT DATE: 20200717
